FAERS Safety Report 8063187-8 (Version None)
Quarter: 2012Q1

REPORT INFORMATION
  Report Type: 
  Country: None (occurrence: None)
  Receive Date: 20120123
  Receipt Date: 20120116
  Transmission Date: 20120608
  Serious: Yes (Other)
  Sender: FDA-Public Use
  Company Number: PHHY2012PL003995

PATIENT
  Age: 24 Year
  Sex: Female

DRUGS (1)
  1. CYCLOSPORINE [Suspect]
     Indication: PSORIASIS

REACTIONS (2)
  - GASTROINTESTINAL HAEMORRHAGE [None]
  - COLITIS ULCERATIVE [None]
